FAERS Safety Report 5745596-2 (Version None)
Quarter: 2008Q2

REPORT INFORMATION
  Report Type: 
  Country: None (occurrence: None)
  Receive Date: 20080521
  Receipt Date: 20080514
  Transmission Date: 20081010
  Serious: Yes (Other)
  Sender: FDA-Public Use
  Company Number: ES-ABBOTT-08P-144-0450961-00

PATIENT
  Age: 41 Year
  Sex: Male

DRUGS (5)
  1. KALETRA [Suspect]
     Indication: HIV INFECTION
     Route: 048
     Dates: start: 20061001
  2. RIBAVIRIN [Interacting]
     Indication: HEPATITIS C VIRUS
     Route: 048
     Dates: start: 20051011, end: 20061220
  3. LAMIVUDINE + ZIDOVUDINE [Interacting]
     Indication: HIV INFECTION
     Dosage: 150/300 MG
     Route: 048
  4. PEGINTERFERON ALFA-2A [Interacting]
     Indication: DRUG USE FOR UNKNOWN INDICATION
  5. PEGASYS [Interacting]
     Indication: HEPATITIS C VIRUS
     Route: 048
     Dates: start: 20061011, end: 20061215

REACTIONS (2)
  - DRUG INTERACTION [None]
  - POLYNEUROPATHY [None]
